FAERS Safety Report 20964967 (Version 7)
Quarter: 2025Q4

REPORT INFORMATION
  Report Type: Spontaneous
  Country: JP (occurrence: JP)
  Receive Date: 20220616
  Receipt Date: 20251223
  Transmission Date: 20260118
  Serious: Yes (Hospitalization, Other)
  Sender: JOHNSON AND JOHNSON
  Company Number: JP-JNJFOC-20220610082

PATIENT
  Age: 78 Year
  Sex: Female
  Weight: 49 kg

DRUGS (16)
  1. OPSUMIT [Suspect]
     Active Substance: MACITENTAN
     Indication: Pulmonary arterial hypertension
     Route: 048
     Dates: start: 2020
  2. OPSUMIT [Suspect]
     Active Substance: MACITENTAN
     Indication: Systemic scleroderma
  3. UPTRAVI [Suspect]
     Active Substance: SELEXIPAG
     Indication: Pulmonary arterial hypertension
     Route: 048
     Dates: start: 2020, end: 2020
  4. UPTRAVI [Suspect]
     Active Substance: SELEXIPAG
     Indication: Antinuclear antibody
     Route: 048
     Dates: start: 2020, end: 2020
  5. UPTRAVI [Suspect]
     Active Substance: SELEXIPAG
     Route: 048
     Dates: start: 2020, end: 2020
  6. UPTRAVI [Suspect]
     Active Substance: SELEXIPAG
     Route: 048
     Dates: start: 2020, end: 2020
  7. UPTRAVI [Suspect]
     Active Substance: SELEXIPAG
     Route: 048
     Dates: start: 2020, end: 2020
  8. UPTRAVI [Suspect]
     Active Substance: SELEXIPAG
     Route: 048
     Dates: start: 2020, end: 2020
  9. UPTRAVI [Suspect]
     Active Substance: SELEXIPAG
     Route: 048
     Dates: start: 2020
  10. ADCIRCA [Suspect]
     Active Substance: TADALAFIL
     Indication: Pulmonary arterial hypertension
     Route: 048
     Dates: start: 2020
  11. ADCIRCA [Suspect]
     Active Substance: TADALAFIL
     Indication: Antinuclear antibody
  12. OXYGEN [Concomitant]
     Active Substance: OXYGEN
     Indication: Product used for unknown indication
     Route: 055
  13. OXYGEN [Concomitant]
     Active Substance: OXYGEN
     Route: 055
  14. OXYGEN [Concomitant]
     Active Substance: OXYGEN
     Route: 055
  15. OXYGEN [Concomitant]
     Active Substance: OXYGEN
     Route: 055
  16. OXYGEN [Concomitant]
     Active Substance: OXYGEN
     Route: 055

REACTIONS (3)
  - Hypoxia [Recovering/Resolving]
  - Renal impairment [Unknown]
  - Cardiac output increased [Unknown]

NARRATIVE: CASE EVENT DATE: 20200101
